FAERS Safety Report 23368968 (Version 1)
Quarter: 2024Q1

REPORT INFORMATION
  Report Type: Spontaneous
  Country: US (occurrence: US)
  Receive Date: 20240105
  Receipt Date: 20240105
  Transmission Date: 20240409
  Serious: No
  Sender: FDA-Public Use
  Company Number: US-BRISTOL-MYERS SQUIBB COMPANY-2024-002747

PATIENT
  Sex: Male

DRUGS (1)
  1. SPRYCEL [Suspect]
     Active Substance: DASATINIB
     Indication: Product used for unknown indication
     Dosage: DOSE : UNAVAILALBE;     FREQ : DAILY

REACTIONS (2)
  - Headache [Unknown]
  - Nausea [Unknown]
